FAERS Safety Report 7540842-7 (Version None)
Quarter: 2011Q2

REPORT INFORMATION
  Report Type: 
  Country: None (occurrence: None)
  Receive Date: 20110610
  Receipt Date: 20110601
  Transmission Date: 20111010
  Serious: Yes (Hospitalization)
  Sender: FDA-Public Use
  Company Number: US-ACTELION-A-NJ2011-49285

PATIENT

DRUGS (13)
  1. LASIX [Concomitant]
  2. HYDROCODONE BITARTRATE [Concomitant]
  3. TRACLEER [Suspect]
     Indication: PULMONARY ARTERIAL HYPERTENSION
     Dosage: 125 MG, BID
     Route: 048
     Dates: start: 20071029
  4. LORAZEPAM [Concomitant]
  5. FOLIC ACID [Concomitant]
  6. COUMADIN [Concomitant]
  7. GUANFACINE HYDROCHLORIDE [Concomitant]
  8. BISACODYL [Concomitant]
  9. NIFEDIPINE [Concomitant]
  10. OXYCODONE HCL [Concomitant]
  11. XOPENEX [Concomitant]
  12. DULOXETINE HYDROCHLORIDE [Concomitant]
  13. AZATHIOPRINE [Concomitant]

REACTIONS (7)
  - OEDEMA PERIPHERAL [None]
  - CHRONIC OBSTRUCTIVE PULMONARY DISEASE [None]
  - HYPONATRAEMIA [None]
  - PULMONARY HYPERTENSION [None]
  - DYSPNOEA [None]
  - COR PULMONALE [None]
  - ACUTE RESPIRATORY FAILURE [None]
